FAERS Safety Report 6134873-1 (Version None)
Quarter: 2009Q1

REPORT INFORMATION
  Report Type: 
  Country: None (occurrence: None)
  Receive Date: 20090327
  Receipt Date: 20090316
  Transmission Date: 20090719
  Serious: Yes (Death, Life-Threatening, Hospitalization, Disabling)
  Sender: FDA-Public Use
  Company Number: GB-PFIZER INC-2009185009

PATIENT

DRUGS (9)
  1. SPIRONOLACTONE [Suspect]
  2. FRUSEMIDE [Suspect]
  3. ZANTAC [Suspect]
     Indication: HYPERCHLORHYDRIA
     Dates: end: 20001024
  4. ABDEC [Concomitant]
  5. POTASSIUM CHLORIDE [Concomitant]
  6. RIBOFLAVIN TAB [Concomitant]
  7. PYRIDOXINE HYDROCHLORIDE [Concomitant]
  8. NICOTINAMIDE [Concomitant]
  9. ASCORBIC ACID [Concomitant]

REACTIONS (21)
  - AGITATION [None]
  - BREATH ODOUR [None]
  - CARDIAC ARREST [None]
  - CARDIOMEGALY [None]
  - CRYING [None]
  - CYANOSIS [None]
  - DIARRHOEA [None]
  - DRUG ADMINISTRATION ERROR [None]
  - DRUG TOXICITY [None]
  - DYSPNOEA [None]
  - EMOTIONAL DISTRESS [None]
  - FAECES DISCOLOURED [None]
  - INTERCOSTAL RETRACTION [None]
  - LUNG INJURY [None]
  - OVERDOSE [None]
  - OXYGEN SATURATION DECREASED [None]
  - PRODUCTIVE COUGH [None]
  - PYREXIA [None]
  - RESPIRATORY DISTRESS [None]
  - RESTLESSNESS [None]
  - WHEEZING [None]
